FAERS Safety Report 4669564-7 (Version None)
Quarter: 2005Q2

REPORT INFORMATION
  Report Type: 
  Country: None (occurrence: None)
  Receive Date: 20050520
  Receipt Date: 20050331
  Transmission Date: 20051028
  Serious: No
  Sender: FDA-Public Use
  Company Number: 2005S1001785

PATIENT
  Age: 40 Year
  Sex: Female
  Weight: 58.9676 kg

DRUGS (7)
  1. FENTANYL [Suspect]
     Indication: INTERVERTEBRAL DISC DEGENERATION
     Dosage: 50 MCG/HR; TDER
     Dates: start: 20050201, end: 20050324
  2. FENTANYL [Suspect]
     Indication: MULTIPLE SCLEROSIS
     Dosage: 50 MCG/HR; TDER
     Dates: start: 20050201, end: 20050324
  3. FENTANYL [Suspect]
     Indication: INTERVERTEBRAL DISC DEGENERATION
     Dosage: 75 MCG/HR;
     Dates: start: 20050324, end: 20050331
  4. FENTANYL [Suspect]
     Indication: MULTIPLE SCLEROSIS
     Dosage: 75 MCG/HR;
     Dates: start: 20050324, end: 20050331
  5. PARACETAMOL/OXYCODONE HYDROCHLORIDE [Concomitant]
  6. CITALOPRAM HYDROBROMIDE [Concomitant]
  7. CYCLOBENZAPRINE HYDROCHLORIDE [Concomitant]

REACTIONS (4)
  - HYPERHIDROSIS [None]
  - INADEQUATE ANALGESIA [None]
  - NAUSEA [None]
  - PAIN [None]
